FAERS Safety Report 4801395-7 (Version None)
Quarter: 2005Q4

REPORT INFORMATION
  Report Type: 
  Country: None (occurrence: None)
  Receive Date: 20051011
  Receipt Date: 20051011
  Transmission Date: 20060501
  Serious: Yes (Life-Threatening)
  Sender: FDA-Public Use
  Company Number: None

PATIENT
  Age: 62 Year
  Sex: Male
  Weight: 76.6 kg

DRUGS (1)
  1. GAMMAGARD S/D 5 G BAXTER [Suspect]
     Indication: IDIOPATHIC THROMBOCYTOPENIC PURPURA
     Dosage: 75 G 1 DOSE IV IV DRIP
     Route: 041
     Dates: start: 20051004, end: 20051004

REACTIONS (5)
  - DYSPNOEA [None]
  - FEELING HOT [None]
  - FLUSHING [None]
  - INFUSION RELATED REACTION [None]
  - WHEEZING [None]
